FAERS Safety Report 12231703 (Version 7)
Quarter: 2016Q3

REPORT INFORMATION
  Report Type: Report from Study
  Country: MX (occurrence: MX)
  Receive Date: 20160401
  Receipt Date: 20160715
  Transmission Date: 20161109
  Serious: Yes (Hospitalization, Other)
  Sender: FDA-Public Use
  Company Number: MX-BAYER-2015-404717

PATIENT
  Age: 59 Year
  Sex: Female
  Weight: 58.5 kg

DRUGS (8)
  1. NEXAVAR [Suspect]
     Active Substance: SORAFENIB
     Indication: HEPATOCELLULAR CARCINOMA
     Dosage: 400 MG, BID
     Route: 048
     Dates: end: 20150823
  2. CAPTORIL [Concomitant]
     Active Substance: CAPTOPRIL
  3. SPIRONOLACTONE. [Concomitant]
     Active Substance: SPIRONOLACTONE
  4. NEXAVAR [Suspect]
     Active Substance: SORAFENIB
     Indication: HEPATOCELLULAR CARCINOMA
     Dosage: 400 MG IN AM, 200 MG IN PM
     Route: 048
     Dates: end: 2015
  5. NEXAVAR [Suspect]
     Active Substance: SORAFENIB
     Indication: HEPATOCELLULAR CARCINOMA
     Dosage: 200 MG, QD
     Route: 048
     Dates: end: 201604
  6. PROPRANOLOL [Concomitant]
     Active Substance: PROPRANOLOL\PROPRANOLOL HYDROCHLORIDE
  7. OMEPRAZOLE. [Concomitant]
     Active Substance: OMEPRAZOLE
  8. VITAMIN B COMPLEX [CYANOCOBALAMIN] [Concomitant]

REACTIONS (77)
  - Nail discolouration [Not Recovered/Not Resolved]
  - Pain in extremity [None]
  - Musculoskeletal disorder [Not Recovered/Not Resolved]
  - Gastric dilatation [Not Recovered/Not Resolved]
  - Laziness [Not Recovered/Not Resolved]
  - Skin fissures [Not Recovered/Not Resolved]
  - Trismus [None]
  - Jaw disorder [None]
  - Gastritis [Not Recovered/Not Resolved]
  - Transfusion [Not Recovered/Not Resolved]
  - Urinary retention [Not Recovered/Not Resolved]
  - Dizziness [None]
  - Asthenia [None]
  - Local swelling [None]
  - Cough [Not Recovered/Not Resolved]
  - Pulmonary pain [Not Recovered/Not Resolved]
  - Weight decreased [Recovered/Resolved]
  - Dehydration [Not Recovered/Not Resolved]
  - Fatigue [Not Recovered/Not Resolved]
  - Bone pain [Not Recovered/Not Resolved]
  - Diarrhoea [Not Recovered/Not Resolved]
  - Anal incontinence [Unknown]
  - Induration [Not Recovered/Not Resolved]
  - Salivary hypersecretion [Not Recovered/Not Resolved]
  - Platelet count decreased [Not Recovered/Not Resolved]
  - Pain [Not Recovered/Not Resolved]
  - Chest pain [Not Recovered/Not Resolved]
  - Erythema [Not Recovered/Not Resolved]
  - Abdominal pain upper [Not Recovered/Not Resolved]
  - Faeces discoloured [Not Recovered/Not Resolved]
  - Nasopharyngitis [Not Recovered/Not Resolved]
  - Drug ineffective [None]
  - Headache [Not Recovered/Not Resolved]
  - Insomnia [None]
  - Neoplasm progression [Not Recovered/Not Resolved]
  - Off label use [None]
  - Ear pain [None]
  - Skin lesion [Not Recovered/Not Resolved]
  - Therapy cessation [Not Recovered/Not Resolved]
  - Drug intolerance [None]
  - Diarrhoea [Recovered/Resolved]
  - Uterine haemorrhage [None]
  - Suicidal ideation [Not Recovered/Not Resolved]
  - Irritability [None]
  - Arthralgia [Not Recovered/Not Resolved]
  - Oesophageal pain [Not Recovered/Not Resolved]
  - Hepatic mass [Recovering/Resolving]
  - Skin induration [Recovered/Resolved]
  - Skin fissures [Recovered/Resolved]
  - Feeling abnormal [Not Recovered/Not Resolved]
  - Pain in extremity [Not Recovered/Not Resolved]
  - Stomatitis [Not Recovered/Not Resolved]
  - Muscle spasms [Not Recovered/Not Resolved]
  - Pain in extremity [Not Recovered/Not Resolved]
  - Memory impairment [Not Recovered/Not Resolved]
  - Limb discomfort [Not Recovered/Not Resolved]
  - Diarrhoea [Not Recovered/Not Resolved]
  - Abdominal discomfort [Not Recovered/Not Resolved]
  - Mastication disorder [Not Recovered/Not Resolved]
  - Depressed mood [None]
  - Hypoaesthesia [None]
  - Pruritus [Not Recovered/Not Resolved]
  - Thirst [Not Recovered/Not Resolved]
  - Weight decreased [Not Recovered/Not Resolved]
  - Decreased appetite [Not Recovered/Not Resolved]
  - Erythema [Not Recovered/Not Resolved]
  - Burning sensation [Not Recovered/Not Resolved]
  - Product use issue [None]
  - Feeling cold [Not Recovered/Not Resolved]
  - Peripheral swelling [Not Recovered/Not Resolved]
  - Dysgeusia [Not Recovered/Not Resolved]
  - Immunodeficiency [Unknown]
  - Fall [None]
  - Dyspepsia [Not Recovered/Not Resolved]
  - Liver disorder [Not Recovered/Not Resolved]
  - Memory impairment [None]
  - Palmar-plantar erythrodysaesthesia syndrome [Recovered/Resolved]

NARRATIVE: CASE EVENT DATE: 201510
